FAERS Safety Report 12906874 (Version 2)
Quarter: 2017Q4

REPORT INFORMATION
  Report Type: Spontaneous
  Country: US (occurrence: US)
  Receive Date: 20161103
  Receipt Date: 20171208
  Transmission Date: 20180320
  Serious: Yes (Death, Other)
  Sender: FDA-Public Use
  Company Number: US-WEST-WARD PHARMACEUTICALS CORP.-US-H14001-16-02302

PATIENT
  Age: 41 Year
  Sex: Female
  Weight: 72.7 kg

DRUGS (6)
  1. TAPENTADOL [Suspect]
     Active Substance: TAPENTADOL
     Indication: COMPLETED SUICIDE
     Route: 048
  2. MORPHINE [Concomitant]
     Active Substance: MORPHINE
     Indication: PRODUCT USED FOR UNKNOWN INDICATION
     Route: 065
  3. OXYMORPHONE [Concomitant]
     Active Substance: OXYMORPHONE
     Indication: PRODUCT USED FOR UNKNOWN INDICATION
     Route: 065
  4. OXYCODONE [Suspect]
     Active Substance: OXYCODONE
     Indication: COMPLETED SUICIDE
     Route: 048
  5. CITALOPRAM [Concomitant]
     Active Substance: CITALOPRAM HYDROBROMIDE
     Indication: PRODUCT USED FOR UNKNOWN INDICATION
     Route: 065
  6. CLONAZEPAM. [Concomitant]
     Active Substance: CLONAZEPAM
     Indication: PRODUCT USED FOR UNKNOWN INDICATION
     Route: 065

REACTIONS (5)
  - Pulmonary oedema [Fatal]
  - Pneumonia aspiration [Fatal]
  - Toxicity to various agents [Fatal]
  - Intentional overdose [Fatal]
  - Completed suicide [Fatal]
